FAERS Safety Report 9496226 (Version 1)
Quarter: 2013Q3

REPORT INFORMATION
  Report Type: Spontaneous
  Country: NO (occurrence: None)
  Receive Date: 20130829
  Receipt Date: 20130829
  Transmission Date: 20140515
  Serious: Yes (Hospitalization)
  Sender: FDA-Public Use
  Company Number: FK201303739

PATIENT
  Age: 9 Year
  Sex: Female
  Weight: 34.8 kg

DRUGS (16)
  1. ONDANSETRON [Suspect]
     Indication: PROPHYLAXIS OF NAUSEA AND VOMITING
     Dosage: (NOT OTHERWISE SPECIFIED)
     Route: 042
     Dates: start: 20100217, end: 20100217
  2. APREPITANT [Suspect]
     Indication: NEOPLASM MALIGNANT
     Dosage: 1 IN 1 TOTAL (NOT OTHERWISE SPECIFIED)
     Route: 048
     Dates: start: 20100217, end: 20100217
  3. DACTINOMYCIN [Suspect]
     Indication: NEOPLASM MALIGNANT
     Dosage: 1 IN 1 TOTAL (NOT OTHERWISE SPECIFIED)
     Route: 042
     Dates: start: 20100217, end: 20100217
  4. DOXORUBICIN [Suspect]
     Indication: NEOPLASM MALIGNANT
     Dosage: 1 IN 1 D (NOT OTHERWISE SPECIFIED)
     Route: 042
     Dates: start: 20100217, end: 20100218
  5. VINCRISTINE [Suspect]
     Indication: NEOPLASM MALIGNANT
     Dosage: 1 IN 1 TOTAL (NOT OTHERWISE SPECIFIED)
     Route: 042
     Dates: start: 20100217, end: 20100217
  6. DEXAMETHASONE (DEXAMETHASONE) (DEXAMETHASONE) [Concomitant]
  7. IFOSFAMIDE (IFOSFAMIDE) (IFOSFAMIDE) [Concomitant]
  8. SULFAMETHOXAZOLE AND TRIMETHOPRIM (SULFAMETHOXAZOLE AND TRIMETHOPRIM) (SULFAMETHOXAZOLE AND TRIMETHOPRIM) [Concomitant]
  9. RANITIDINE (RANITIDINE) (RANITIDINE) [Concomitant]
  10. OMEPRAZOLE (OMEPRAZOLE) (OMEPRAZOLE) [Concomitant]
  11. IMPORTAL (LACTITOL) (LACTITOL) [Concomitant]
  12. GENTAMICIN (GENTAMICIN) (GENTAMICIN) [Concomitant]
  13. FILGRASTIM (FILGRASTIM) (FILGRASTIM) [Concomitant]
  14. LANSOPRAZOLE (LANSOPRAZOLE) (LANSOPRAZOLE) [Concomitant]
  15. BENZYLPENICILLIN (BENZYLPENICILLIN) (BENZYLPENICILLIN) [Concomitant]
  16. FLUCONAZOLE (FLUCONAZOLE) (FLUCONAZOLE) [Concomitant]

REACTIONS (2)
  - Febrile neutropenia [None]
  - Oral pain [None]
